FAERS Safety Report 24908096 (Version 1)
Quarter: 2025Q1

REPORT INFORMATION
  Report Type: Spontaneous
  Country: DK (occurrence: DK)
  Receive Date: 20250131
  Receipt Date: 20250131
  Transmission Date: 20250408
  Serious: No
  Sender: ASTELLAS
  Company Number: DK-ASTELLAS-2025-AER-005761

PATIENT
  Sex: Female

DRUGS (1)
  1. VEOZAH [Suspect]
     Active Substance: FEZOLINETANT
     Indication: Product used for unknown indication
     Dosage: 30 IN TOTAL (ONE TABLET ONCE A DAY).
     Route: 065

REACTIONS (1)
  - Drug ineffective [Unknown]
